FAERS Safety Report 8896038 (Version 2)
Quarter: 2012Q4

REPORT INFORMATION
  Report Type: 
  Country: US (occurrence: US)
  Receive Date: 20121107
  Receipt Date: 20121127
  Transmission Date: 20130627
  Serious: Yes (Hospitalization, Other)
  Sender: FDA-Public Use
  Company Number: US-BAXTER-2012BAX021755

PATIENT
  Age: 60 Year
  Sex: Female

DRUGS (3)
  1. DIANEAL LOW CALCIUM [Suspect]
     Indication: CAPD
     Route: 033
  2. DIANEAL LOW CALCIUM [Suspect]
     Indication: CAPD
     Route: 033
  3. EXTRANEAL [Suspect]
     Indication: CAPD
     Route: 033

REACTIONS (3)
  - Infection [Unknown]
  - Peripheral vascular disorder [Recovering/Resolving]
  - Pneumonia [Unknown]
